FAERS Safety Report 9211084 (Version 1)
Quarter: 2013Q2

REPORT INFORMATION
  Report Type: Report from Study
  Country: US (occurrence: US)
  Receive Date: 20130404
  Receipt Date: 20130404
  Transmission Date: 20140414
  Serious: Yes (Other)
  Sender: FDA-Public Use
  Company Number: US-AMGEN-US360096

PATIENT
  Age: 66 Year
  Sex: Male

DRUGS (15)
  1. DENOSUMAB [Suspect]
     Indication: PROSTATE CANCER
     Dosage: UNK BLINDED, QMO
     Route: 058
     Dates: start: 20060727, end: 20090603
  2. RANITIDINE HYDROCHLORIDE [Concomitant]
  3. MULTIPLE VITAMINS [Concomitant]
     Dosage: UNK UNK, QD
     Route: 048
     Dates: start: 2003
  4. TOCOPHEROL [Concomitant]
     Dosage: UNK UNK, QD
     Route: 048
     Dates: start: 2003
  5. ASCORBIC ACID [Concomitant]
     Dosage: UNK UNK, QD
     Route: 048
     Dates: start: 2003
  6. LOTREL [Concomitant]
     Dosage: UNK UNK, BID
     Route: 048
     Dates: start: 2004
  7. BISOPROLOL FUMARATE [Concomitant]
     Dosage: UNK UNK, BID
     Route: 048
     Dates: start: 2004
  8. CALCIUM [Concomitant]
     Dosage: 1000 MG, QD
     Route: 048
     Dates: start: 20060708
  9. ERGOCALCIFEROL [Concomitant]
     Dosage: 400 IU, QD
     Route: 048
     Dates: start: 20060708
  10. FLUTAMIDE [Concomitant]
     Dosage: 500 MG, QD
     Route: 048
     Dates: start: 20070921, end: 20080305
  11. KETOCONAZOLE [Concomitant]
     Dosage: 400 MG, TID
     Route: 048
     Dates: start: 20080611, end: 20090515
  12. PREDNISONE [Concomitant]
     Dosage: 5 MG, QD
     Route: 048
     Dates: start: 20080611
  13. SELENIUM [Concomitant]
     Dosage: UNK UNK, QD
     Route: 048
     Dates: start: 200806
  14. HYDROCODONE BITARTRATE + ACETAMINOPHEN [Concomitant]
     Dosage: 5 MG, PRN
     Route: 048
     Dates: start: 20090319, end: 200905
  15. LEUPRORELIN ACETATE [Concomitant]
     Dosage: 30 MG, Q4MO
     Route: 030
     Dates: start: 20031027

REACTIONS (1)
  - Osteonecrosis of jaw [Not Recovered/Not Resolved]
